FAERS Safety Report 14750081 (Version 1)
Quarter: 2018Q2

REPORT INFORMATION
  Report Type: Spontaneous
  Country: US (occurrence: US)
  Receive Date: 20180412
  Receipt Date: 20180412
  Transmission Date: 20180711
  Serious: No
  Sender: FDA-Public Use
  Company Number: US-ACCORD-050699

PATIENT
  Age: 72 Year
  Sex: Male
  Weight: 74.84 kg

DRUGS (1)
  1. SIMVASTATIN. [Suspect]
     Active Substance: SIMVASTATIN
     Indication: BLOOD CHOLESTEROL
     Dosage: ONE TABLET EVERY OTHER DAY OVER ONE YEAR AGO (EXACT START DATE NOT PROVIDED)
     Route: 048

REACTIONS (2)
  - Alopecia [Unknown]
  - Rash generalised [Unknown]
